FAERS Safety Report 10009448 (Version 1)
Quarter: 2014Q1

REPORT INFORMATION
  Report Type: Report from Study
  Country: LB (occurrence: LB)
  Receive Date: 20140313
  Receipt Date: 20140313
  Transmission Date: 20141002
  Serious: Yes (Death)
  Sender: FDA-Public Use
  Company Number: PHHY2014LB030990

PATIENT
  Age: 77 Year
  Sex: Female

DRUGS (4)
  1. ACLASTA [Suspect]
     Dosage: UKN
     Route: 042
  2. METHOTREXATE [Concomitant]
     Dosage: 5.2 UKN
     Route: 048
  3. FOLIC ACID [Concomitant]
     Dosage: 5 MG, UNK
     Route: 048
  4. ENALAPRIL [Concomitant]
     Dosage: 10 MG, UNK
     Route: 048

REACTIONS (1)
  - Death [Fatal]
